FAERS Safety Report 9099549 (Version 1)
Quarter: 2013Q1

REPORT INFORMATION
  Report Type: Spontaneous
  Country: US (occurrence: US)
  Receive Date: 20130214
  Receipt Date: 20130214
  Transmission Date: 20140127
  Serious: No
  Sender: FDA-Public Use
  Company Number: US-PFIZER INC-2013055494

PATIENT
  Age: 78 Year
  Sex: Male
  Weight: 72.56 kg

DRUGS (7)
  1. ATORVASTATIN CALCIUM [Suspect]
     Indication: BLOOD CHOLESTEROL INCREASED
     Dosage: 10 MG, 1X/DAY
     Dates: start: 200707, end: 20070901
  2. LOVASTATIN [Suspect]
     Indication: BLOOD CHOLESTEROL INCREASED
     Dosage: 20 MG, 1X/DAY
     Dates: start: 200707, end: 200709
  3. ATORVASTATIN [Suspect]
     Indication: BLOOD CHOLESTEROL INCREASED
     Dosage: 10 MG, 1X/DAY
     Dates: start: 201301
  4. TAMSULOSIN [Concomitant]
     Indication: PROSTATE CANCER
     Dosage: 0.4 MG, 2X/DAY
  5. PRINIVIL [Concomitant]
     Dosage: 20 MG, 1X/DAY
  6. METOPROLOL [Concomitant]
     Dosage: 12.5 MG, 1X/DAY
  7. PROSCAR [Concomitant]
     Indication: PROSTATE CANCER
     Dosage: 5 MG, 1X/DAY

REACTIONS (3)
  - Hypersensitivity [Recovered/Resolved]
  - Myalgia [Recovering/Resolving]
  - Insomnia [Recovering/Resolving]
